FAERS Safety Report 8096159-8 (Version None)
Quarter: 2012Q1

REPORT INFORMATION
  Report Type: 
  Country: None (occurrence: None)
  Receive Date: 20120131
  Receipt Date: 20120121
  Transmission Date: 20120608
  Serious: Yes (Other)
  Sender: FDA-Public Use
  Company Number: JP-VIIV HEALTHCARE LIMITED-B0777227A

PATIENT
  Sex: Male
  Weight: 2.66 kg

DRUGS (5)
  1. RETROVIR [Suspect]
     Indication: PROPHYLAXIS AGAINST HIV INFECTION
     Dosage: 20.8MG PER DAY
     Route: 048
     Dates: start: 20111129, end: 20120109
  2. EPZICOM [Suspect]
     Indication: HIV INFECTION
     Dosage: 1IUAX PER DAY
     Route: 064
  3. NORVIR [Suspect]
     Indication: HIV INFECTION
     Dosage: 1IUAX PER DAY
     Route: 064
  4. RETROVIR [Suspect]
     Dosage: 400MG PER DAY
     Route: 042
     Dates: start: 20111129, end: 20111129
  5. LEXIVA [Suspect]
     Indication: HIV INFECTION
     Dosage: 2IUAX PER DAY
     Route: 064

REACTIONS (2)
  - ANAEMIA [None]
  - FOETAL EXPOSURE DURING PREGNANCY [None]
